FAERS Safety Report 6699304-1 (Version None)
Quarter: 2010Q2

REPORT INFORMATION
  Report Type: 
  Country: None (occurrence: None)
  Receive Date: 20100427
  Receipt Date: 20100420
  Transmission Date: 20101027
  Serious: Yes (Congenital Anomaly)
  Sender: FDA-Public Use
  Company Number: ZA-BRISTOL-MYERS SQUIBB COMPANY-14948632

PATIENT
  Age: 1 Day

DRUGS (4)
  1. EFAVIRENZ TABS [Suspect]
     Route: 064
  2. LAMIVUDINE [Concomitant]
     Route: 064
  3. SULFAMETHOXAZOLE AND TRIMETHOPRIM [Concomitant]
     Route: 064
  4. ZIDOVUDINE [Concomitant]
     Route: 064

REACTIONS (1)
  - POLYDACTYLY [None]
